FAERS Safety Report 20572844 (Version 1)
Quarter: 2022Q1

REPORT INFORMATION
  Report Type: Spontaneous
  Country: US (occurrence: US)
  Receive Date: 20220309
  Receipt Date: 20220309
  Transmission Date: 20220423
  Serious: No
  Sender: FDA-Public Use
  Company Number: US-PFIZER INC-202200051827

PATIENT
  Age: 84 Year
  Sex: Female
  Weight: 72.562 kg

DRUGS (2)
  1. TOVIAZ [Suspect]
     Active Substance: FESOTERODINE FUMARATE
     Indication: Hypertonic bladder
     Dosage: 4 MG, 1X/DAY
     Route: 048
  2. TOVIAZ [Suspect]
     Active Substance: FESOTERODINE FUMARATE
     Indication: Micturition urgency

REACTIONS (2)
  - Dry mouth [Unknown]
  - Intentional product misuse [Unknown]
